FAERS Safety Report 15640960 (Version 2)
Quarter: 2019Q1

REPORT INFORMATION
  Report Type: Spontaneous
  Country: US (occurrence: US)
  Receive Date: 20181120
  Receipt Date: 20190313
  Transmission Date: 20190417
  Serious: Yes (Hospitalization)
  Sender: FDA-Public Use
  Company Number: US-VERTEX PHARMACEUTICALS-2018-008560

PATIENT
  Age: 20 Year
  Sex: Male

DRUGS (18)
  1. TOBRAMYCIN. [Concomitant]
     Active Substance: TOBRAMYCIN
  2. MIRTAZAPINE. [Concomitant]
     Active Substance: MIRTAZAPINE
  3. SMZ-TMP [Concomitant]
     Active Substance: SULFAMETHOXAZOLE\TRIMETHOPRIM
  4. VITAMIN A                          /00056001/ [Concomitant]
     Active Substance: RETINOL
  5. VITAMIN E                          /00110501/ [Concomitant]
     Active Substance: TOCOPHEROL
  6. IPRATROPIUM W/SALBUTAMOL SULFATE [Concomitant]
  7. FLUTICASONE. [Concomitant]
     Active Substance: FLUTICASONE
  8. URSODOL [Concomitant]
  9. VITAMIN D3 [Concomitant]
     Active Substance: CHOLECALCIFEROL
  10. CETRIZINE [Concomitant]
     Active Substance: CETIRIZINE HYDROCHLORIDE
  11. SODIUM CHLORIDE. [Concomitant]
     Active Substance: SODIUM CHLORIDE
  12. ORKAMBI [Suspect]
     Active Substance: IVACAFTOR\LUMACAFTOR
     Indication: CYSTIC FIBROSIS
     Dosage: 200/125 MG TABLETS, BID
     Route: 048
     Dates: start: 20150827
  13. PULMOZYME [Concomitant]
     Active Substance: DORNASE ALFA
  14. CREON [Concomitant]
     Active Substance: PANCRELIPASE AMYLASE\PANCRELIPASE LIPASE\PANCRELIPASE PROTEASE
  15. MONTELUKAST [Concomitant]
     Active Substance: MONTELUKAST SODIUM
  16. PREDNISONE. [Concomitant]
     Active Substance: PREDNISONE
  17. AZITHROMYCIN ANHYDROUS. [Concomitant]
     Active Substance: AZITHROMYCIN ANHYDROUS
  18. MEGESTROL [Concomitant]
     Active Substance: MEGESTROL

REACTIONS (1)
  - Hospitalisation [Unknown]

NARRATIVE: CASE EVENT DATE: 201811
